FAERS Safety Report 20347856 (Version 1)
Quarter: 2022Q1

REPORT INFORMATION
  Report Type: Other
  Country: US (occurrence: None)
  Receive Date: 20220118
  Receipt Date: 20220118
  Transmission Date: 20220423
  Serious: No
  Sender: FDA-Public Use
  Company Number: US-ROCHE-2999679

PATIENT
  Age: 48 Year
  Sex: Female

DRUGS (7)
  1. OCREVUS [Suspect]
     Active Substance: OCRELIZUMAB
     Indication: Multiple sclerosis
     Dosage: DATE OF TREATMENT: 17/OCT/2018, 04/APR/2019, 19/SEPT/2019, 05/MAR/2020, 20/AUG/2020, 12/FEB/2021, 30
     Route: 065
     Dates: start: 20181003
  2. MODAFINIL [Concomitant]
     Active Substance: MODAFINIL
  3. LOSARTAN [Concomitant]
     Active Substance: LOSARTAN
  4. POTASSIUM [Concomitant]
     Active Substance: POTASSIUM
  5. CLOBETASOL [Concomitant]
     Active Substance: CLOBETASOL
  6. RIZATRIPTAN [Concomitant]
     Active Substance: RIZATRIPTAN
  7. SOOLANTRA [Concomitant]
     Active Substance: IVERMECTIN

REACTIONS (1)
  - COVID-19 [Not Recovered/Not Resolved]

NARRATIVE: CASE EVENT DATE: 20220104
